FAERS Safety Report 7354301-8 (Version None)
Quarter: 2011Q1

REPORT INFORMATION
  Report Type: 
  Country: None (occurrence: None)
  Receive Date: 20110316
  Receipt Date: 20110303
  Transmission Date: 20110831
  Serious: No
  Sender: FDA-Public Use
  Company Number: US-BIOGENIDEC-2011BI008547

PATIENT
  Sex: Male

DRUGS (1)
  1. AVONEX [Suspect]
     Indication: MULTIPLE SCLEROSIS
     Route: 030
     Dates: start: 20100801

REACTIONS (8)
  - COORDINATION ABNORMAL [None]
  - CATARACT [None]
  - INFLUENZA LIKE ILLNESS [None]
  - VOMITING [None]
  - MULTIPLE SCLEROSIS RELAPSE [None]
  - DIARRHOEA [None]
  - MUSCLE TWITCHING [None]
  - DEPRESSION [None]
